FAERS Safety Report 5152500-7 (Version None)
Quarter: 2006Q4

REPORT INFORMATION
  Report Type: 
  Country: None (occurrence: None)
  Receive Date: 20061109
  Receipt Date: 20061025
  Transmission Date: 20070319
  Serious: Yes (Hospitalization)
  Sender: FDA-Public Use
  Company Number: 2006001907

PATIENT
  Age: 80 Year
  Sex: Male

DRUGS (6)
  1. ERLOTINIB [Suspect]
     Indication: NON-SMALL CELL LUNG CANCER
     Dosage: 100 MG (QD), ORAL
     Route: 048
     Dates: start: 20050216, end: 20060831
  2. ERLOTINIB [Suspect]
     Indication: NON-SMALL CELL LUNG CANCER
     Dosage: 100 MG (QD), ORAL
     Route: 048
     Dates: start: 20050704
  3. GLIMEPIRIDE [Concomitant]
  4. PANTOPRAZOLE SODIUM [Concomitant]
  5. DIGITOXIN TAB [Concomitant]
  6. ASPIRIN [Concomitant]

REACTIONS (1)
  - PEMPHIGOID [None]
